FAERS Safety Report 7483977-X (Version None)
Quarter: 2011Q2

REPORT INFORMATION
  Report Type: 
  Country: None (occurrence: None)
  Receive Date: 20110513
  Receipt Date: 20110513
  Transmission Date: 20111010
  Serious: Yes (Other)
  Sender: FDA-Public Use
  Company Number: None

PATIENT
  Age: 2 Year
  Sex: Male
  Weight: 15.4223 kg

DRUGS (1)
  1. SINGULAIR [Suspect]
     Indication: SINUSITIS
     Dosage: 1 CHEWABLE TABLET DAILY
     Dates: start: 20110503, end: 20110509

REACTIONS (5)
  - HOSTILITY [None]
  - AGGRESSION [None]
  - DEPRESSION [None]
  - SCREAMING [None]
  - CRYING [None]
